FAERS Safety Report 21950475 (Version 1)
Quarter: 2023Q1

REPORT INFORMATION
  Report Type: Spontaneous
  Country: US (occurrence: None)
  Receive Date: 20230203
  Receipt Date: 20230203
  Transmission Date: 20230418
  Serious: No
  Sender: FDA-Public Use
  Company Number: None

PATIENT
  Age: 39 Year
  Sex: Female
  Weight: 56.25 kg

DRUGS (2)
  1. CANNABIDIOL [Suspect]
     Active Substance: CANNABIDIOL
     Dates: start: 20220601, end: 20220928
  2. DRONABINOL [Concomitant]
     Active Substance: DRONABINOL

REACTIONS (11)
  - Tachycardia [None]
  - Blood pressure increased [None]
  - Hallucination [None]
  - Suicidal ideation [None]
  - Homicidal ideation [None]
  - Speech disorder [None]
  - Movement disorder [None]
  - Dry mouth [None]
  - Panic attack [None]
  - Intrusive thoughts [None]
  - Post-traumatic stress disorder [None]

NARRATIVE: CASE EVENT DATE: 20220928
